FAERS Safety Report 25452372 (Version 1)
Quarter: 2025Q2

REPORT INFORMATION
  Report Type: Spontaneous
  Country: US (occurrence: None)
  Receive Date: 20250618
  Receipt Date: 20250618
  Transmission Date: 20250716
  Serious: Yes (Hospitalization)
  Sender: FDA-CTU
  Company Number: None

PATIENT
  Age: 66 Year
  Sex: Female
  Weight: 98 kg

DRUGS (2)
  1. CEFTRIAXONE [Suspect]
     Active Substance: CEFTRIAXONE
     Indication: Escherichia bacteraemia
     Route: 042
     Dates: start: 20250617, end: 20250617
  2. Ropinirole 1 mg [Concomitant]
     Dates: start: 20250204

REACTIONS (7)
  - Blood culture positive [None]
  - Escherichia test positive [None]
  - Dizziness [None]
  - Malaise [None]
  - Dyspnoea [None]
  - Wheezing [None]
  - Metabolic disorder [None]

NARRATIVE: CASE EVENT DATE: 20250617
